FAERS Safety Report 7794539-9 (Version None)
Quarter: 2011Q4

REPORT INFORMATION
  Report Type: 
  Country: None (occurrence: None)
  Receive Date: 20111004
  Receipt Date: 20110926
  Transmission Date: 20120403
  Serious: Yes (Other)
  Sender: FDA-Public Use
  Company Number: US-BAYER-2011-092172

PATIENT
  Sex: Male

DRUGS (1)
  1. AVELOX [Suspect]
     Indication: SINUSITIS

REACTIONS (6)
  - NERVOUS SYSTEM DISORDER [None]
  - DIZZINESS [None]
  - EMOTIONAL DISORDER [None]
  - CONFUSIONAL STATE [None]
  - MUSCLE TWITCHING [None]
  - LETHARGY [None]
